FAERS Safety Report 5128932-X (Version None)
Quarter: 2006Q4

REPORT INFORMATION
  Report Type: 
  Country: None (occurrence: None)
  Receive Date: 20061017
  Receipt Date: 20060927
  Transmission Date: 20070319
  Serious: Yes (Hospitalization)
  Sender: FDA-Public Use
  Company Number: JP-BRISTOL-MYERS SQUIBB COMPANY-13539754

PATIENT
  Age: 72 Year
  Sex: Female

DRUGS (4)
  1. RESLIN [Suspect]
     Route: 048
     Dates: start: 20040801
  2. SULPIRIDE [Suspect]
     Route: 048
     Dates: start: 20040801
  3. XANAX [Suspect]
     Route: 048
     Dates: start: 20040801
  4. TOLAZOLINE HCL [Concomitant]
     Dates: start: 20040801

REACTIONS (2)
  - LIVER DISORDER [None]
  - SYSTEMIC LUPUS ERYTHEMATOSUS [None]
